FAERS Safety Report 6843924-8 (Version None)
Quarter: 2010Q3

REPORT INFORMATION
  Report Type: 
  Country: None (occurrence: None)
  Receive Date: 20100714
  Receipt Date: 20100714
  Transmission Date: 20110219
  Serious: Yes (Hospitalization)
  Sender: FDA-Public Use
  Company Number: None

PATIENT
  Age: 78 Year
  Sex: Male

DRUGS (3)
  1. AMITRIPTYLINE HYDROCHLORIDE [Suspect]
     Indication: PHANTOM PAIN
     Dosage: 150 MG HS PO
     Route: 048
     Dates: start: 20100420, end: 20100427
  2. AMITRIPTYLINE HYDROCHLORIDE [Suspect]
     Indication: SLEEP DISORDER THERAPY
     Dosage: 150 MG HS PO
     Route: 048
     Dates: start: 20100420, end: 20100427
  3. SERTRALINE HCL [Suspect]
     Indication: DEPRESSION
     Dosage: 150 MG EVERY DAY PO
     Route: 048
     Dates: start: 20100325, end: 20100427

REACTIONS (2)
  - BLOOD PRESSURE ORTHOSTATIC [None]
  - FALL [None]
